FAERS Safety Report 6708542-0 (Version None)
Quarter: 2010Q2

REPORT INFORMATION
  Report Type: 
  Country: None (occurrence: None)
  Receive Date: 20100503
  Receipt Date: 20090702
  Transmission Date: 20101027
  Serious: No
  Sender: FDA-Public Use
  Company Number: US-ASTRAZENECA-2009UW18595

PATIENT
  Sex: Male

DRUGS (12)
  1. NEXIUM [Suspect]
     Route: 048
     Dates: start: 20090501
  2. VESICARE [Suspect]
     Route: 048
  3. TUMS [Concomitant]
     Indication: DYSPEPSIA
  4. MYLANTA [Concomitant]
  5. MAALOX [Concomitant]
  6. DIOVAN [Concomitant]
  7. ZOCOR [Concomitant]
  8. IMDUR [Concomitant]
  9. NIACIN [Concomitant]
  10. ASPIRIN [Concomitant]
  11. CENTRUM SILVER [Concomitant]
  12. TOPROL-XL [Concomitant]

REACTIONS (4)
  - DIARRHOEA [None]
  - DYSPEPSIA [None]
  - FUNGAL INFECTION [None]
  - HYPERTONIC BLADDER [None]
